FAERS Safety Report 6265019-7 (Version None)
Quarter: 2009Q3

REPORT INFORMATION
  Report Type: 
  Country: None (occurrence: None)
  Receive Date: 20090713
  Receipt Date: 20090709
  Transmission Date: 20100115
  Serious: Yes (Hospitalization)
  Sender: FDA-Public Use
  Company Number: FR-JNJFOC-20090600368

PATIENT
  Age: 62 Year
  Sex: Female

DRUGS (6)
  1. TAVANIC [Suspect]
     Indication: LUNG DISORDER
     Route: 042
  2. AUGMENTIN [Suspect]
     Indication: LUNG DISORDER
     Route: 042
  3. TAZOCILLINE [Suspect]
     Indication: LUNG DISORDER
     Route: 042
  4. AMIKLIN [Suspect]
     Indication: LUNG DISORDER
     Route: 042
  5. VANCOMYCIN [Suspect]
     Indication: LUNG DISORDER
     Route: 042
  6. TRIFLUCAN [Suspect]
     Indication: LUNG DISORDER
     Route: 048

REACTIONS (1)
  - DRUG RASH WITH EOSINOPHILIA AND SYSTEMIC SYMPTOMS [None]
